FAERS Safety Report 17228450 (Version 1)
Quarter: 2020Q1

REPORT INFORMATION
  Report Type: Spontaneous
  Country: CH (occurrence: CH)
  Receive Date: 20200103
  Receipt Date: 20200103
  Transmission Date: 20200409
  Serious: Yes (Hospitalization)
  Sender: FDA-Public Use
  Company Number: CH-TEVA-2019-CH-1162851

PATIENT
  Age: 48 Year
  Sex: Male

DRUGS (5)
  1. RIFAMPICIN [Interacting]
     Active Substance: RIFAMPIN
     Indication: ANTIBIOTIC THERAPY
     Route: 048
  2. TOPIRAMATE. [Interacting]
     Active Substance: TOPIRAMATE
     Indication: PSYCHOTIC DISORDER
     Route: 065
  3. OLANZAPINE. [Suspect]
     Active Substance: OLANZAPINE
     Indication: PSYCHOTIC DISORDER
     Route: 065
  4. LORAZEPAM. [Interacting]
     Active Substance: LORAZEPAM
     Indication: PSYCHOTIC DISORDER
     Route: 065
  5. OXYCODONE [Interacting]
     Active Substance: OXYCODONE
     Indication: ANALGESIC THERAPY
     Dosage: LONG-TERM AS WELL AS SHORT TERM
     Route: 065

REACTIONS (3)
  - Inadequate analgesia [Unknown]
  - Therapeutic product effect decreased [Unknown]
  - Drug interaction [Unknown]
